FAERS Safety Report 9442876 (Version 1)
Quarter: 2013Q3

REPORT INFORMATION
  Report Type: Spontaneous
  Country: US (occurrence: US)
  Receive Date: 20130806
  Receipt Date: 20130806
  Transmission Date: 20140515
  Serious: Yes (Other)
  Sender: FDA-Public Use
  Company Number: US-ACTAVIS-2013-13263

PATIENT
  Age: 60 Year
  Sex: Female

DRUGS (1)
  1. FENTANYL-100 (WATSON LABORATORIES) [Suspect]
     Indication: BACK PAIN
     Dosage: ONE PATCH Q72H
     Route: 062
     Dates: start: 20130721

REACTIONS (3)
  - Drug withdrawal syndrome [Not Recovered/Not Resolved]
  - Drug ineffective [Not Recovered/Not Resolved]
  - Paraesthesia [Not Recovered/Not Resolved]
